FAERS Safety Report 24591606 (Version 1)
Quarter: 2024Q4

REPORT INFORMATION
  Report Type: Spontaneous
  Country: US (occurrence: US)
  Receive Date: 20241108
  Receipt Date: 20241108
  Transmission Date: 20250115
  Serious: Yes (Death, Hospitalization, Other)
  Sender: EDENBRIDGE PHARMACEUTICALS
  Company Number: US-EDENBRIDGE PHARMACEUTICALS, LLC-US-2024EDE000068

PATIENT
  Age: 82 Year
  Sex: Female

DRUGS (1)
  1. IVERMECTIN [Suspect]
     Active Substance: IVERMECTIN
     Indication: COVID-19
     Dosage: 3 MG, TID (FOR 5 DAYS)
     Route: 065

REACTIONS (19)
  - Glomerular filtration rate decreased [Fatal]
  - Aspartate aminotransferase increased [Fatal]
  - Alanine aminotransferase increased [Fatal]
  - Headache [Fatal]
  - Decreased appetite [Fatal]
  - Blood pressure increased [Fatal]
  - Anxiety [Fatal]
  - Fibrin D dimer [Fatal]
  - Vomiting [Fatal]
  - Nausea [Fatal]
  - Dizziness [Fatal]
  - Asthenia [Fatal]
  - COVID-19 pneumonia [Fatal]
  - Brain injury [Fatal]
  - Coma scale abnormal [Fatal]
  - Toxicity to various agents [Fatal]
  - Blood pressure decreased [Fatal]
  - Pupillary reflex impaired [Fatal]
  - Off label use [Unknown]
